FAERS Safety Report 21030156 (Version 2)
Quarter: 2022Q3

REPORT INFORMATION
  Report Type: Spontaneous
  Country: ES (occurrence: ES)
  Receive Date: 20220701
  Receipt Date: 20220719
  Transmission Date: 20221027
  Serious: Yes (Other)
  Sender: FDA-Public Use
  Company Number: ES-PFIZER INC-PV202200003003

PATIENT
  Age: 36 Year
  Sex: Male

DRUGS (2)
  1. ZOLEDRONIC ACID [Suspect]
     Active Substance: ZOLEDRONIC ACID
     Indication: Osteogenesis imperfecta
     Dosage: UNK
     Route: 042
     Dates: end: 2012
  2. PAMIDRONIC ACID [Suspect]
     Active Substance: PAMIDRONIC ACID
     Indication: Osteogenesis imperfecta
     Dosage: UNK FOUR ADMINISTRATIONS
     Route: 042

REACTIONS (2)
  - Femur fracture [Unknown]
  - Atypical femur fracture [Unknown]
